FAERS Safety Report 15684934 (Version 1)
Quarter: 2018Q4

REPORT INFORMATION
  Report Type: Spontaneous
  Country: US (occurrence: US)
  Receive Date: 20181204
  Receipt Date: 20181204
  Transmission Date: 20190205
  Serious: Yes (Hospitalization)
  Sender: FDA-Public Use
  Company Number: US-ANTARES PHARMA, INC.-2018-LIT-ME-0538

PATIENT
  Age: 75 Year
  Sex: Female

DRUGS (1)
  1. METHOTREXATE. [Suspect]
     Active Substance: METHOTREXATE
     Indication: CONJUNCTIVAL DISORDER
     Dosage: 15 MG, WEEKLY

REACTIONS (13)
  - Decreased appetite [Unknown]
  - Alopecia [Unknown]
  - Off label use [Unknown]
  - Abdominal pain [Unknown]
  - Nausea [Unknown]
  - Rash [Unknown]
  - Urinary tract infection [Unknown]
  - Conjunctival disorder [Recovered/Resolved]
  - Adverse event [Unknown]
  - Ulcerative keratitis [Recovered/Resolved]
  - Corneal epithelium defect [Recovered/Resolved]
  - Anaemia [Unknown]
  - Pneumonia [Unknown]
